FAERS Safety Report 5492718-7 (Version None)
Quarter: 2007Q4

REPORT INFORMATION
  Report Type: 
  Country: None (occurrence: None)
  Receive Date: 20071019
  Receipt Date: 20071009
  Transmission Date: 20080405
  Serious: Yes (Hospitalization)
  Sender: FDA-Public Use
  Company Number: MEDI-0006019

PATIENT
  Sex: Male
  Weight: 3.3 kg

DRUGS (1)
  1. SYNAGIS [Suspect]
     Indication: ANTIVIRAL PROPHYLAXIS
     Dosage: 15 MG/KG
     Dates: start: 20061130, end: 20061130

REACTIONS (1)
  - RESPIRATORY TRACT INFECTION [None]
